FAERS Safety Report 9162557 (Version 3)
Quarter: 2013Q2

REPORT INFORMATION
  Report Type: Spontaneous
  Country: JP (occurrence: JP)
  Receive Date: 20130314
  Receipt Date: 20130501
  Transmission Date: 20140414
  Serious: Yes (Hospitalization)
  Sender: FDA-Public Use
  Company Number: JP-MYLANLABS-2013S1004914

PATIENT
  Age: 33 Year
  Sex: Male
  Weight: 104.2 kg

DRUGS (17)
  1. VANCOMYCIN [Suspect]
     Indication: DEVICE RELATED INFECTION
     Route: 041
     Dates: start: 20130122, end: 20130122
  2. VANCOMYCIN [Suspect]
     Indication: DEVICE RELATED INFECTION
     Route: 041
     Dates: start: 20130123, end: 20130123
  3. VANCOMYCIN [Suspect]
     Indication: DEVICE RELATED INFECTION
     Route: 041
     Dates: start: 20130124, end: 20130124
  4. VANCOMYCIN [Suspect]
     Indication: DEVICE RELATED INFECTION
     Route: 041
     Dates: start: 20130126, end: 20130126
  5. VANCOMYCIN [Suspect]
     Indication: DEVICE RELATED INFECTION
     Route: 041
     Dates: start: 20130129, end: 20130129
  6. VANCOMYCIN [Suspect]
     Indication: DEVICE RELATED INFECTION
     Route: 041
     Dates: start: 20130131, end: 20130131
  7. VANCOMYCIN [Suspect]
     Indication: DEVICE RELATED INFECTION
     Route: 041
     Dates: start: 20130202, end: 20130202
  8. VANCOMYCIN [Suspect]
     Indication: DEVICE RELATED INFECTION
     Route: 041
     Dates: start: 20130207, end: 20130207
  9. VANCOMYCIN [Suspect]
     Indication: DEVICE RELATED INFECTION
     Route: 041
     Dates: start: 20130209, end: 20130209
  10. VANCOMYCIN [Suspect]
     Indication: DEVICE RELATED INFECTION
     Route: 041
     Dates: end: 20130213
  11. MEROPENEM [Suspect]
     Indication: DEVICE RELATED INFECTION
     Route: 041
     Dates: start: 20130205, end: 20130207
  12. MEROPENEM [Suspect]
     Indication: DEVICE RELATED INFECTION
     Route: 041
     Dates: start: 20130208, end: 20130213
  13. LASIX [Concomitant]
     Indication: OEDEMA DUE TO RENAL DISEASE
     Route: 048
     Dates: start: 20130125
  14. PARIET [Concomitant]
     Indication: GASTROOESOPHAGEAL REFLUX DISEASE
     Route: 048
     Dates: start: 20130129
  15. ALEROFF [Concomitant]
     Indication: PRURITUS
     Route: 048
     Dates: start: 20130201
  16. BIOFERMIN R [Concomitant]
     Indication: DIARRHOEA
     Route: 048
     Dates: start: 20130125, end: 20130131
  17. SELBEX [Concomitant]
     Indication: GASTRITIS
     Route: 048
     Dates: start: 20130125, end: 20130131

REACTIONS (2)
  - Pyrexia [Recovered/Resolved]
  - Anaemia [Unknown]
